FAERS Safety Report 4442029-3 (Version None)
Quarter: 2004Q3

REPORT INFORMATION
  Report Type: 
  Country: None (occurrence: None)
  Receive Date: 20040901
  Receipt Date: 20040819
  Transmission Date: 20050211
  Serious: No
  Sender: FDA-Public Use
  Company Number: 2004-119549-NL

PATIENT
  Sex: Female

DRUGS (1)
  1. NUVARING [Suspect]
     Indication: CONTRACEPTION
     Dosage: DF VAGINAL
     Route: 067
     Dates: start: 20031105, end: 20040421

REACTIONS (4)
  - BREAST PAIN [None]
  - FEMALE SEXUAL DYSFUNCTION [None]
  - MEDICAL DEVICE DISCOMFORT [None]
  - SKIN DISORDER [None]
